FAERS Safety Report 8609572 (Version 2)
Quarter: 2014Q1

REPORT INFORMATION
  Report Type: Spontaneous
  Country: US (occurrence: None)
  Receive Date: 20120323
  Receipt Date: 20130305
  Transmission Date: 20141002
  Serious: Yes (Other)
  Sender: FDA-Public Use
  Company Number: 163-21880-11120533

PATIENT
  Age: 87 Year
  Sex: Male
  Weight: 78.2 kg

DRUGS (8)
  1. REVLIMID [Suspect]
     Indication: PLASMA CELL MYELOMA
     Dosage: 10 MG, 1 IN 1 D, PO
     Route: 048
     Dates: start: 20111108, end: 20111115
  2. DEXAMETHASONE (DEXAMETHASONE) [Concomitant]
  3. ASA (ACETYLSALICYLIC ACID) [Concomitant]
  4. SPIRONOLACTONE [Concomitant]
  5. FUROSEMIDE (FUROSEMIDE) [Concomitant]
  6. GLYBURIDE (GLIBENCLAMIDE) [Concomitant]
  7. LISINOPRIL (LISINOPRIL) [Concomitant]
  8. SIMVASTATIN [Concomitant]

REACTIONS (3)
  - Rash generalised [None]
  - Dyspnoea [None]
  - Chest pain [None]
